FAERS Safety Report 13076570 (Version 1)
Quarter: 2016Q4

REPORT INFORMATION
  Report Type: Spontaneous
  Country: US (occurrence: US)
  Receive Date: 20161230
  Receipt Date: 20161230
  Transmission Date: 20170207
  Serious: Yes (Hospitalization, Other)
  Sender: FDA-Public Use
  Company Number: US-JNJFOC-20161221825

PATIENT
  Age: 77 Year
  Sex: Female
  Weight: 66.68 kg

DRUGS (18)
  1. XARELTO [Suspect]
     Active Substance: RIVAROXABAN
     Indication: ATRIAL FIBRILLATION
     Route: 048
  2. NORVASC [Concomitant]
     Active Substance: AMLODIPINE BESYLATE
     Route: 048
  3. NITROSTAT [Concomitant]
     Active Substance: NITROGLYCERIN
     Dosage: UNDER TONGUE
     Route: 060
  4. MIRAPEX [Concomitant]
     Active Substance: PRAMIPEXOLE DIHYDROCHLORIDE
     Route: 048
  5. SOTALOL. [Suspect]
     Active Substance: SOTALOL
     Indication: ATRIAL FIBRILLATION
     Route: 065
     Dates: start: 20150729
  6. FOLIC ACID. [Concomitant]
     Active Substance: FOLIC ACID
     Route: 048
  7. PRAVACHOL [Concomitant]
     Active Substance: PRAVASTATIN SODIUM
     Route: 048
  8. XARELTO [Suspect]
     Active Substance: RIVAROXABAN
     Indication: ATRIAL FIBRILLATION
     Route: 048
     Dates: start: 20150728, end: 20150919
  9. TYLENOL [Concomitant]
     Active Substance: ACETAMINOPHEN
     Indication: PAIN
     Route: 048
  10. K-DUR [Concomitant]
     Active Substance: POTASSIUM CHLORIDE
     Dosage: TAKE WITH A MEAL AND FULL GLASS OF WATER
     Route: 048
  11. CARVEDILOL. [Suspect]
     Active Substance: CARVEDILOL
     Indication: PRODUCT USED FOR UNKNOWN INDICATION
     Route: 065
  12. TIKOSYN [Concomitant]
     Active Substance: DOFETILIDE
     Route: 048
  13. AMOXIL [Concomitant]
     Active Substance: AMOXICILLIN
     Dosage: 30-60 MIN PRIOR TO DENTIST
     Route: 048
  14. COZAAR [Concomitant]
     Active Substance: LOSARTAN POTASSIUM
     Route: 048
  15. ASPIRIN. [Concomitant]
     Active Substance: ASPIRIN
     Route: 048
  16. CLARITIN [Concomitant]
     Active Substance: LORATADINE
     Route: 048
  17. FISH OIL OMEGA 3 [Concomitant]
     Route: 065
  18. VITAZOL [Concomitant]
     Active Substance: METRONIDAZOLE
     Route: 061

REACTIONS (3)
  - Drug prescribing error [Unknown]
  - Aortic valve replacement [Recovered/Resolved]
  - Bradycardia [Unknown]

NARRATIVE: CASE EVENT DATE: 2015
